FAERS Safety Report 9792490 (Version 3)
Quarter: 2014Q1

REPORT INFORMATION
  Report Type: Spontaneous
  Country: JP (occurrence: JP)
  Receive Date: 20140102
  Receipt Date: 20140221
  Transmission Date: 20141002
  Serious: Yes (Death)
  Sender: FDA-Public Use
  Company Number: JP-SA-2013SA135523

PATIENT
  Age: 7 Year
  Sex: Female
  Weight: 16 kg

DRUGS (10)
  1. CEREZYME [Suspect]
     Indication: GAUCHER^S DISEASE
     Dosage: DOSE:75 UNIT(S)/KILOGRAM BODYWEIGHT
     Route: 042
     Dates: end: 20131205
  2. PHENOBAL [Concomitant]
     Dosage: INJECTION, 5 TIMES A DAY
     Dates: end: 20131205
  3. HORIZON [Concomitant]
     Dosage: INJECTION, 5 TIMES A DAY
     Dates: end: 20131205
  4. EXCEGRAN [Concomitant]
     Dosage: 5 TIMES A DAY
     Dates: end: 20131205
  5. PIRACETAM [Concomitant]
     Dates: end: 20131205
  6. THYRADIN S [Concomitant]
     Dates: end: 20131205
  7. CARBOCISTEINE [Concomitant]
     Dosage: 0.5  (UNITS NOT SPECIFIED)
     Dates: end: 20131205
  8. PERSANTIN [Concomitant]
     Dates: end: 20131205
  9. L-CARTIN [Concomitant]
     Dates: end: 20131205
  10. SCOPOLIA EXTRACT [Concomitant]
     Dosage: 0.05 (UNIT NOT SPECIFIED)
     Dates: end: 20131205

REACTIONS (1)
  - Respiratory failure [Fatal]
